FAERS Safety Report 24945701 (Version 1)
Quarter: 2025Q1

REPORT INFORMATION
  Report Type: Spontaneous
  Country: US (occurrence: US)
  Receive Date: 20250209
  Receipt Date: 20250209
  Transmission Date: 20250409
  Serious: No
  Sender: SANOFI AVENTIS
  Company Number: US-SA-2025SA034677

PATIENT
  Sex: Female

DRUGS (2)
  1. DUPIXENT [Suspect]
     Active Substance: DUPILUMAB
     Indication: Eczema
     Dosage: 300 MG, QOW
     Route: 058
     Dates: start: 2023
  2. DUPIXENT [Suspect]
     Active Substance: DUPILUMAB
     Route: 058
     Dates: start: 20250121, end: 20250121

REACTIONS (5)
  - Eczema [Unknown]
  - Skin fissures [Recovering/Resolving]
  - Skin haemorrhage [Recovering/Resolving]
  - Pruritus [Recovering/Resolving]
  - Maternal exposure during pregnancy [Unknown]
